FAERS Safety Report 10077067 (Version 1)
Quarter: 2014Q2

REPORT INFORMATION
  Report Type: Spontaneous
  Country: US (occurrence: US)
  Receive Date: 20140414
  Receipt Date: 20140414
  Transmission Date: 20141212
  Serious: No
  Sender: FDA-Public Use
  Company Number: US-VERTEX PHARMACEUTICALS INC-2014-001919

PATIENT
  Sex: Female

DRUGS (3)
  1. KALYDECO [Suspect]
     Indication: CYSTIC FIBROSIS
     Dosage: 150 MG, BID
     Route: 048
     Dates: start: 2014
  2. NASONEX [Concomitant]
     Dosage: 2 SPRAYS IN EACH NOSTRIL, QD
  3. SYMBICORT [Concomitant]
     Dosage: 160 MG, 2 PUFFS VIA INHALATION, BID

REACTIONS (1)
  - Headache [Recovering/Resolving]
